FAERS Safety Report 19045546 (Version 5)
Quarter: 2024Q4

REPORT INFORMATION
  Report Type: Report from Study
  Country: CA (occurrence: CA)
  Receive Date: 20210322
  Receipt Date: 20241012
  Transmission Date: 20250114
  Serious: Yes (Hospitalization, Other)
  Sender: TAKEDA
  Company Number: CA-TAKEDA-CA202021583

PATIENT
  Age: 61 Year
  Sex: Female

DRUGS (8)
  1. ICATIBANT [Suspect]
     Active Substance: ICATIBANT ACETATE
     Indication: Angioedema
     Dosage: 30 MILLIGRAM
     Route: 065
     Dates: start: 20141014
  2. ICATIBANT [Suspect]
     Active Substance: ICATIBANT ACETATE
     Indication: Angioedema
     Dosage: 30 MILLIGRAM
     Route: 065
     Dates: start: 20141014
  3. ICATIBANT [Suspect]
     Active Substance: ICATIBANT ACETATE
     Indication: Hereditary angioedema
     Dosage: UNK
     Route: 058
  4. ICATIBANT [Suspect]
     Active Substance: ICATIBANT ACETATE
     Indication: Hereditary angioedema
     Dosage: UNK
     Route: 058
  5. CINRYZE [Concomitant]
     Active Substance: HUMAN C1-ESTERASE INHIBITOR
     Indication: Hereditary angioedema
     Route: 065
  6. EPIPEN [Concomitant]
     Active Substance: EPINEPHRINE
     Indication: Hereditary angioedema
     Route: 065
  7. BERINERT [Concomitant]
     Active Substance: HUMAN C1-ESTERASE INHIBITOR
     Indication: Hereditary angioedema
     Dosage: UNK UNK, 1/WEEK
     Route: 065
  8. CYKLOKAPRON [Concomitant]
     Active Substance: TRANEXAMIC ACID
     Indication: Product used for unknown indication
     Dosage: 4 MILLIGRAM, TID
     Route: 065
     Dates: start: 20170630

REACTIONS (7)
  - Oxygen saturation decreased [Not Recovered/Not Resolved]
  - Tracheal haemorrhage [Recovered/Resolved]
  - Blood pressure increased [Recovered/Resolved]
  - Cardiac fibrillation [Recovered/Resolved]
  - Product use issue [Unknown]
  - Pregnancy [Not Recovered/Not Resolved]
  - Dermatitis contact [Unknown]

NARRATIVE: CASE EVENT DATE: 20200601
